FAERS Safety Report 26170522 (Version 1)
Quarter: 2025Q4

REPORT INFORMATION
  Report Type: Spontaneous
  Country: US (occurrence: US)
  Receive Date: 20251217
  Receipt Date: 20251217
  Transmission Date: 20260118
  Serious: No
  Sender: ROCHE
  Company Number: US-ROCHE-10000454730

PATIENT

DRUGS (2)
  1. TECENTRIQ [Suspect]
     Active Substance: ATEZOLIZUMAB
     Indication: Small cell lung cancer extensive stage
     Route: 042
  2. TECENTRIQ HYBREZA [Concomitant]
     Active Substance: ATEZOLIZUMAB\HYALURONIDASE-TQJS
     Indication: Product used for unknown indication
     Route: 058

REACTIONS (1)
  - Infusion related reaction [Unknown]
